FAERS Safety Report 6625859-9 (Version None)
Quarter: 2010Q1

REPORT INFORMATION
  Report Type: 
  Country: None (occurrence: None)
  Receive Date: 20100305
  Receipt Date: 20100223
  Transmission Date: 20100710
  Serious: Yes (Death)
  Sender: FDA-Public Use
  Company Number: DSA_42277_2009

PATIENT
  Sex: Female
  Weight: 44.4525 kg

DRUGS (4)
  1. XENAZINE [Suspect]
     Indication: HUNTINGTON'S CHOREA
     Dosage: (12.5 MG BID), (12.5 MG TID)
     Dates: start: 20091208, end: 20091214
  2. XENAZINE [Suspect]
     Indication: HUNTINGTON'S CHOREA
     Dosage: (12.5 MG BID), (12.5 MG TID)
     Dates: start: 20091214, end: 20091217
  3. ROXANOL (NOT SPECIFIED) [Suspect]
     Indication: DRUG USE FOR UNKNOWN INDICATION
     Dosage: (30 ML (20 MG/1 ML))
  4. MORPHINE SULFATE [Suspect]
     Indication: DRUG USE FOR UNKNOWN INDICATION
     Dosage: (5MG BID SUBLINGUAL)
     Route: 060
     Dates: start: 20090629, end: 20091217

REACTIONS (4)
  - DYSPNOEA [None]
  - FAILURE TO THRIVE [None]
  - HYPOTENSION [None]
  - RESPIRATORY RATE INCREASED [None]
